FAERS Safety Report 17034995 (Version 1)
Quarter: 2019Q4

REPORT INFORMATION
  Report Type: Report from Study
  Country: US (occurrence: US)
  Receive Date: 20191115
  Receipt Date: 20191115
  Transmission Date: 20200122
  Serious: Yes (Hospitalization)
  Sender: FDA-Public Use
  Company Number: US-BIOGEN-2019BI00793359

PATIENT
  Age: 45 Year
  Sex: Male

DRUGS (2)
  1. TECFIDERA [Suspect]
     Active Substance: DIMETHYL FUMARATE
     Indication: MULTIPLE SCLEROSIS
     Route: 065
     Dates: start: 20151020, end: 20190801
  2. TECFIDERA [Suspect]
     Active Substance: DIMETHYL FUMARATE
     Route: 065
     Dates: start: 20190925, end: 201910

REACTIONS (7)
  - Drug intolerance [Recovered/Resolved]
  - Gait inability [Not Recovered/Not Resolved]
  - Aphasia [Not Recovered/Not Resolved]
  - Prescribed underdose [Unknown]
  - Malaise [Not Recovered/Not Resolved]
  - Memory impairment [Unknown]
  - Multiple sclerosis relapse [Not Recovered/Not Resolved]

NARRATIVE: CASE EVENT DATE: 201910
